FAERS Safety Report 13338779 (Version 5)
Quarter: 2017Q3

REPORT INFORMATION
  Report Type: Report from Study
  Country: US (occurrence: US)
  Receive Date: 20170315
  Receipt Date: 20170821
  Transmission Date: 20171127
  Serious: Yes (Hospitalization, Other)
  Sender: FDA-Public Use
  Company Number: US-JNJFOC-20161112370

PATIENT
  Sex: Female
  Weight: 55 kg

DRUGS (13)
  1. IBRUTINIB [Suspect]
     Active Substance: IBRUTINIB
     Indication: CHRONIC LYMPHOCYTIC LEUKAEMIA
     Route: 048
     Dates: end: 20170407
  2. OMEGA 3 [Concomitant]
     Active Substance: OMEGA-3 FATTY ACIDS
     Dosage: 900-1400 MG
  3. PRILOSEC [Concomitant]
     Active Substance: OMEPRAZOLE MAGNESIUM
     Dosage: OTC 20 MG
  4. CRANBERRY. [Concomitant]
     Active Substance: CRANBERRY
  5. LORAZEPAM. [Concomitant]
     Active Substance: LORAZEPAM
  6. PROMETHAZINE [Concomitant]
     Active Substance: PROMETHAZINE\PROMETHAZINE HYDROCHLORIDE
     Dosage: 6.25 MG/5 ML
  7. LOSARTAN. [Concomitant]
     Active Substance: LOSARTAN
  8. COLECALCIFEROL [Concomitant]
     Active Substance: CHOLECALCIFEROL
  9. MULTIVITAMINS [Concomitant]
     Active Substance: VITAMINS
     Route: 048
  10. ZYRTEC [Concomitant]
     Active Substance: CETIRIZINE HYDROCHLORIDE
  11. CEFDINIR. [Concomitant]
     Active Substance: CEFDINIR
  12. IBRUTINIB [Suspect]
     Active Substance: IBRUTINIB
     Indication: CHRONIC LYMPHOCYTIC LEUKAEMIA
     Route: 048
     Dates: start: 20160928, end: 201703
  13. CHROMIUM PICOLINATE [Concomitant]
     Active Substance: CHROMIUM PICOLINATE

REACTIONS (28)
  - Urinary tract infection [Unknown]
  - Blood immunoglobulin G abnormal [Recovering/Resolving]
  - Nasal disorder [Unknown]
  - White blood cell count abnormal [Recovered/Resolved]
  - Diarrhoea [Recovered/Resolved]
  - Lymphadenopathy [Not Recovered/Not Resolved]
  - Blood immunoglobulin A decreased [Unknown]
  - Paraesthesia [Not Recovered/Not Resolved]
  - Hypoaesthesia [Not Recovered/Not Resolved]
  - Blood potassium decreased [Not Recovered/Not Resolved]
  - Gastroenteritis viral [Recovering/Resolving]
  - Pneumonia [Unknown]
  - Haemoglobin decreased [Recovered/Resolved]
  - Arthralgia [Not Recovered/Not Resolved]
  - Hepatic enzyme increased [Recovered/Resolved]
  - Superficial spreading melanoma stage unspecified [Not Recovered/Not Resolved]
  - Photophobia [Not Recovered/Not Resolved]
  - Lymphocyte count abnormal [Recovered/Resolved]
  - Neuropathy peripheral [Not Recovered/Not Resolved]
  - Skin infection [Not Recovered/Not Resolved]
  - Normochromic normocytic anaemia [Unknown]
  - Dehydration [Not Recovered/Not Resolved]
  - White blood cell count increased [Not Recovered/Not Resolved]
  - Nephrolithiasis [Unknown]
  - Abdominal pain upper [Not Recovered/Not Resolved]
  - Dyspepsia [Not Recovered/Not Resolved]
  - Vision blurred [Not Recovered/Not Resolved]
  - Hyperhidrosis [Not Recovered/Not Resolved]

NARRATIVE: CASE EVENT DATE: 2017
